FAERS Safety Report 8716473 (Version 2)
Quarter: 2013Q4

REPORT INFORMATION
  Report Type: Spontaneous
  Country: US (occurrence: US)
  Receive Date: 20120810
  Receipt Date: 20131101
  Transmission Date: 20140711
  Serious: No
  Sender: FDA-Public Use
  Company Number: US-009507513-1208USA001575

PATIENT
  Sex: Female

DRUGS (1)
  1. JANUVIA [Suspect]

REACTIONS (1)
  - Muscular weakness [Unknown]
